FAERS Safety Report 14625100 (Version 1)
Quarter: 2018Q1

REPORT INFORMATION
  Report Type: Report from Study
  Country: CH (occurrence: CH)
  Receive Date: 20180312
  Receipt Date: 20180312
  Transmission Date: 20180509
  Serious: Yes (Death, Hospitalization, Other)
  Sender: FDA-Public Use
  Company Number: CH-ROCHE-2081275

PATIENT

DRUGS (9)
  1. CYCLOPHOSPHAMIDE. [Suspect]
     Active Substance: CYCLOPHOSPHAMIDE
     Indication: MANTLE CELL LYMPHOMA
     Route: 065
  2. CISPLATIN. [Suspect]
     Active Substance: CISPLATIN
     Indication: MANTLE CELL LYMPHOMA
     Route: 065
  3. PREDNISONE. [Suspect]
     Active Substance: PREDNISONE
     Indication: MANTLE CELL LYMPHOMA
     Route: 065
  4. METHOTREXATE. [Suspect]
     Active Substance: METHOTREXATE
     Indication: MANTLE CELL LYMPHOMA
     Route: 065
  5. DOXORUBICIN [Suspect]
     Active Substance: DOXORUBICIN
     Indication: MANTLE CELL LYMPHOMA
     Route: 065
  6. CYTARABINE. [Suspect]
     Active Substance: CYTARABINE
     Indication: MANTLE CELL LYMPHOMA
     Route: 065
  7. RITUXIMAB. [Suspect]
     Active Substance: RITUXIMAB
     Indication: MANTLE CELL LYMPHOMA
     Route: 065
  8. VINCRISTINE [Suspect]
     Active Substance: VINCRISTINE
     Indication: MANTLE CELL LYMPHOMA
     Route: 065
  9. DEXAMETHASONE. [Suspect]
     Active Substance: DEXAMETHASONE
     Indication: MANTLE CELL LYMPHOMA
     Route: 065

REACTIONS (19)
  - Mantle cell lymphoma [Fatal]
  - Bone marrow failure [Unknown]
  - Cholecystitis acute [Unknown]
  - Immunosuppression [Fatal]
  - Colitis ulcerative [Unknown]
  - Osteonecrosis [Unknown]
  - Neutropenic sepsis [Unknown]
  - Drug intolerance [Unknown]
  - Polyneuropathy [Unknown]
  - Thrombocytopenia [Unknown]
  - Acute myocardial infarction [Unknown]
  - Septic shock [Fatal]
  - Constipation [Unknown]
  - Hypovolaemic shock [Unknown]
  - Intra-abdominal haemorrhage [Unknown]
  - Pancreatitis acute [Unknown]
  - Pneumonia [Unknown]
  - Escherichia sepsis [Unknown]
  - Febrile neutropenia [Unknown]
